FAERS Safety Report 22525082 (Version 1)
Quarter: 2023Q2

REPORT INFORMATION
  Report Type: Spontaneous
  Country: US (occurrence: None)
  Receive Date: 20230605
  Receipt Date: 20230605
  Transmission Date: 20230721
  Serious: Yes (Death)
  Sender: FDA-Public Use
  Company Number: None

PATIENT
  Sex: Male
  Weight: 116 kg

DRUGS (1)
  1. TECLISTAMAB [Suspect]
     Active Substance: TECLISTAMAB
     Indication: Plasma cell myeloma
     Dosage: OTHER FREQUENCY : ONCE;?
     Route: 058
     Dates: start: 20230518, end: 20230518

REACTIONS (12)
  - Cytokine release syndrome [None]
  - Atrial fibrillation [None]
  - Acute kidney injury [None]
  - Plasma cell disorder [None]
  - Parainfluenzae virus infection [None]
  - Haemodialysis [None]
  - Acute respiratory failure [None]
  - Shock [None]
  - Troponin increased [None]
  - Serum ferritin increased [None]
  - Blood lactate dehydrogenase increased [None]
  - C-reactive protein increased [None]
